FAERS Safety Report 17568290 (Version 1)
Quarter: 2020Q1

REPORT INFORMATION
  Report Type: Spontaneous
  Country: GB (occurrence: GB)
  Receive Date: 20200320
  Receipt Date: 20200320
  Transmission Date: 20200409
  Serious: Yes (Other)
  Sender: FDA-Public Use
  Company Number: GB-SA-2020SA070734

PATIENT
  Age: 32 Year
  Sex: Male

DRUGS (2)
  1. ALEMTUZUMAB [Suspect]
     Active Substance: ALEMTUZUMAB
     Dosage: 30MG WAS GIVEN VIA SLOW IV INFUSION BY DILUTION INTO 50ML NORMAL SALINE AND INFUSED OVER 30MINS.
     Route: 042
  2. SODIUM CHLORIDE. [Concomitant]
     Active Substance: SODIUM CHLORIDE
     Dosage: 50 ML
     Route: 042

REACTIONS (4)
  - Rash [Unknown]
  - Product label on wrong product [Unknown]
  - Incorrect route of product administration [Unknown]
  - Bronchospasm [Unknown]
